FAERS Safety Report 24731824 (Version 1)
Quarter: 2024Q4

REPORT INFORMATION
  Report Type: Spontaneous
  Country: CA (occurrence: CA)
  Receive Date: 20241213
  Receipt Date: 20241213
  Transmission Date: 20250114
  Serious: Yes (Life-Threatening, Hospitalization)
  Sender: PURDUE
  Company Number: CA-MLMSERVICE-20241202-PI277088-00229-1

PATIENT
  Age: 62 Year
  Sex: Male
  Weight: 119.7 kg

DRUGS (12)
  1. MORPHINE SULFATE [Suspect]
     Active Substance: MORPHINE SULFATE
     Indication: Spinal anaesthesia
     Dosage: UTILIZED DURING THE PROCEDURE
     Route: 037
  2. MORPHINE SULFATE [Suspect]
     Active Substance: MORPHINE SULFATE
     Indication: Spinal anaesthesia
     Dosage: UTILIZED DURING THE PROCEDURE
     Route: 037
  3. MIDAZOLAM [Concomitant]
     Active Substance: MIDAZOLAM
     Indication: Sedative therapy
     Dosage: 2 MILLIGRAM, {TOTAL}
     Route: 065
  4. FENTANYL [Concomitant]
     Active Substance: FENTANYL
     Indication: Sedative therapy
     Dosage: 50 MCG, {TOTAL}
     Route: 065
  5. FENTANYL [Concomitant]
     Active Substance: FENTANYL
     Indication: Spinal anaesthesia
     Dosage: 50 MCG, {TOTAL}
     Route: 065
  6. BUPIVACAINE [Concomitant]
     Active Substance: BUPIVACAINE
     Indication: Spinal anaesthesia
     Dosage: TOTAL OF 2 ML OF BUPIVACAINE AT A CONCENTRATION OF 0.75% (15 MG) UTILIZED DURING THE PROCEDURE
     Route: 065
  7. PROPOFOL [Concomitant]
     Active Substance: PROPOFOL
     Indication: Sedative therapy
     Dosage: INITIATED AT A RATE OF 150 ?G/KG/MIN
     Route: 065
  8. CEFAZOLIN [Concomitant]
     Active Substance: CEFAZOLIN
     Indication: Product used for unknown indication
     Dosage: ADMINISTERED BEFORE THE TOURNIQUET INFLATION
     Route: 042
  9. CELEBREX [Concomitant]
     Active Substance: CELECOXIB
     Indication: Pain management
     Dosage: UNK
     Route: 065
  10. MORPHINE SULFATE [Concomitant]
     Active Substance: MORPHINE SULFATE
     Indication: Pain management
     Dosage: UTILIZED OPIOIDS AS NEEDED
     Route: 065
  11. OXYGEN [Concomitant]
     Active Substance: OXYGEN
     Indication: Product used for unknown indication
     Dosage: VIA A MASK
     Route: 065
  12. LACTATED RINGERS SOLUTION [Concomitant]
     Active Substance: CALCIUM CHLORIDE\POTASSIUM CHLORIDE\SODIUM CHLORIDE\SODIUM LACTATE
     Indication: Product used for unknown indication
     Dosage: WARM
     Route: 042

REACTIONS (1)
  - Hypothermia [Recovered/Resolved]
